FAERS Safety Report 23323135 (Version 1)
Quarter: 2023Q4

REPORT INFORMATION
  Report Type: Other
  Country: US (occurrence: None)
  Receive Date: 20231220
  Receipt Date: 20231220
  Transmission Date: 20240109
  Serious: Yes (Other)
  Sender: FDA-Public Use
  Company Number: US-ROCHE-3270779

PATIENT
  Age: 83 Year
  Sex: Male

DRUGS (5)
  1. RITUXIMAB [Suspect]
     Active Substance: RITUXIMAB
     Indication: Acquired haemophilia
     Dosage: EVERY WEEK FOR 4 WEEKS
     Route: 042
  2. TRANEXAMIC ACID [Concomitant]
     Active Substance: TRANEXAMIC ACID
  3. PREDNISONE [Concomitant]
     Active Substance: PREDNISONE
  4. CYCLOPHOSPHAMIDE [Concomitant]
     Active Substance: CYCLOPHOSPHAMIDE
  5. EMICIZUMAB [Concomitant]
     Active Substance: EMICIZUMAB

REACTIONS (4)
  - Sepsis [Unknown]
  - Pseudomonas infection [Unknown]
  - Pneumonia klebsiella [Unknown]
  - Pneumonia aspiration [Unknown]
